FAERS Safety Report 10628472 (Version 2)
Quarter: 2014Q4

REPORT INFORMATION
  Report Type: Spontaneous
  Country: US (occurrence: US)
  Receive Date: 20141205
  Receipt Date: 20141205
  Transmission Date: 20150529
  Serious: No
  Sender: FDA-Public Use
  Company Number: US-BRISTOL-MYERS SQUIBB COMPANY-21236484

PATIENT
  Age: 87 Year
  Sex: Male
  Weight: 74.83 kg

DRUGS (2)
  1. COUMADIN [Suspect]
     Active Substance: WARFARIN SODIUM
     Indication: HEART RATE IRREGULAR
     Route: 048
     Dates: start: 2013
  2. ALCOHOL. [Suspect]
     Active Substance: ALCOHOL

REACTIONS (2)
  - Therapeutic response decreased [Unknown]
  - International normalised ratio abnormal [Unknown]

NARRATIVE: CASE EVENT DATE: 201407
